FAERS Safety Report 21618275 (Version 7)
Quarter: 2023Q2

REPORT INFORMATION
  Report Type: Report from Study
  Country: CO (occurrence: CO)
  Receive Date: 20221119
  Receipt Date: 20230605
  Transmission Date: 20230722
  Serious: Yes (Life-Threatening, Hospitalization, Other)
  Sender: FDA-Public Use
  Company Number: CO-002147023-NVSC2022CO260462

PATIENT
  Age: 14 Year
  Sex: Female
  Weight: 64 kg

DRUGS (6)
  1. ELTROMBOPAG OLAMINE [Suspect]
     Active Substance: ELTROMBOPAG OLAMINE
     Indication: Immune thrombocytopenia
     Dosage: 50 MG, QD
     Route: 048
  2. ELTROMBOPAG OLAMINE [Suspect]
     Active Substance: ELTROMBOPAG OLAMINE
     Dosage: 50 MG, QD
     Route: 048
     Dates: start: 202206, end: 202301
  3. ELTROMBOPAG OLAMINE [Suspect]
     Active Substance: ELTROMBOPAG OLAMINE
     Dosage: 50 MG, QD
     Route: 048
     Dates: start: 20221123
  4. ELTROMBOPAG OLAMINE [Suspect]
     Active Substance: ELTROMBOPAG OLAMINE
     Dosage: 75 MG, QD (ONE OF 50 MG AND ONE OF 25 MG) (EVERY 24 HOURS)
     Route: 048
     Dates: start: 202301
  5. ELTROMBOPAG OLAMINE [Suspect]
     Active Substance: ELTROMBOPAG OLAMINE
     Dosage: UNK, QD
     Route: 048
  6. ELTROMBOPAG OLAMINE [Suspect]
     Active Substance: ELTROMBOPAG OLAMINE
     Dosage: 75 MG, QD (EVERY 24 HOURS)
     Route: 048
     Dates: start: 20230519

REACTIONS (8)
  - Platelet count decreased [Recovered/Resolved]
  - Facial pain [Recovered/Resolved]
  - Petechiae [Not Recovered/Not Resolved]
  - Facial pain [Recovered/Resolved]
  - Pyrexia [Unknown]
  - Headache [Not Recovered/Not Resolved]
  - Influenza [Unknown]
  - Product availability issue [Unknown]

NARRATIVE: CASE EVENT DATE: 20221121
